FAERS Safety Report 12886836 (Version 3)
Quarter: 2017Q2

REPORT INFORMATION
  Report Type: Spontaneous
  Country: US (occurrence: US)
  Receive Date: 20161026
  Receipt Date: 20170406
  Transmission Date: 20170830
  Serious: Yes (Disabling, Other)
  Sender: FDA-Public Use
  Company Number: US-REGENERON PHARMACEUTICALS, INC.-2016-22870

PATIENT

DRUGS (5)
  1. EYLEA [Suspect]
     Active Substance: AFLIBERCEPT
     Dosage: 2 MG MILLIGRAM(S), MONTHLY, RIGHT EYE
     Route: 031
     Dates: start: 20160919, end: 20160919
  2. EYLEA [Suspect]
     Active Substance: AFLIBERCEPT
     Dosage: 2 MG MILLIGRAM(S), MONTHLY, LEFT EYE
     Route: 031
     Dates: start: 20160928, end: 20160928
  3. EYLEA [Suspect]
     Active Substance: AFLIBERCEPT
     Dosage: 2 MG MILLIGRAM(S), MONTHLY
     Dates: start: 201611, end: 201611
  4. EYLEA [Suspect]
     Active Substance: AFLIBERCEPT
     Indication: AGE-RELATED MACULAR DEGENERATION
     Dosage: 2 MG MILLIGRAM(S), MONTHLY
     Dates: start: 20150408
  5. EYLEA [Suspect]
     Active Substance: AFLIBERCEPT
     Dosage: 2 MG MILLIGRAM(S), MONTHLY, FIRST INJECTION IN RIGHT EYE
     Route: 031
     Dates: start: 20150427, end: 20150427

REACTIONS (5)
  - Blindness transient [Recovering/Resolving]
  - Eye infection staphylococcal [Recovering/Resolving]
  - Endophthalmitis [Recovering/Resolving]
  - Cataract [Unknown]
  - Vitrectomy [Recovered/Resolved]

NARRATIVE: CASE EVENT DATE: 20161002
